FAERS Safety Report 6506073-4 (Version None)
Quarter: 2009Q4

REPORT INFORMATION
  Report Type: 
  Country: None (occurrence: None)
  Receive Date: 20091218
  Receipt Date: 20091208
  Transmission Date: 20100525
  Serious: Yes (Other)
  Sender: FDA-Public Use
  Company Number: HOAFF17939

PATIENT
  Age: 15 Month
  Sex: Male
  Weight: 11 kg

DRUGS (2)
  1. HALOPERIDOL [Suspect]
     Indication: ACCIDENTAL EXPOSURE
     Route: 048
  2. ERYTHROMYCIN [Suspect]
     Indication: UPPER RESPIRATORY TRACT INFECTION
     Route: 048

REACTIONS (7)
  - ACCIDENTAL EXPOSURE [None]
  - ACCIDENTAL OVERDOSE [None]
  - ALTERED STATE OF CONSCIOUSNESS [None]
  - DRUG DISPENSING ERROR [None]
  - DRUG TOXICITY [None]
  - PRODUCT PACKAGING ISSUE [None]
  - SOMNOLENCE [None]
